FAERS Safety Report 12159015 (Version 1)
Quarter: 2016Q1

REPORT INFORMATION
  Report Type: Report from Study
  Country: US (occurrence: US)
  Receive Date: 20160308
  Receipt Date: 20160308
  Transmission Date: 20160526
  Serious: Yes (Other)
  Sender: FDA-Public Use
  Company Number: US-BAXALTA-2016BLT001288

PATIENT
  Sex: Female

DRUGS (1)
  1. GAMMAGARD LIQUID [Suspect]
     Active Substance: HUMAN IMMUNOGLOBULIN G
     Indication: PRIMARY IMMUNODEFICIENCY SYNDROME
     Route: 058

REACTIONS (7)
  - Pyrexia [Unknown]
  - Sinusitis [Unknown]
  - Fungal infection [Unknown]
  - Nausea [Unknown]
  - Fatigue [Unknown]
  - Systemic lupus erythematosus [Unknown]
  - Photosensitivity reaction [Unknown]
